FAERS Safety Report 8521235-2 (Version None)
Quarter: 2012Q3

REPORT INFORMATION
  Report Type: 
  Country: None (occurrence: None)
  Receive Date: 20120719
  Receipt Date: 20120710
  Transmission Date: 20120928
  Serious: Yes (Hospitalization)
  Sender: FDA-Public Use
  Company Number: PL-ROCHE-1086751

PATIENT
  Age: 60 Year
  Sex: Female

DRUGS (2)
  1. HERCEPTIN [Suspect]
     Indication: PRODUCT USED FOR UNKNOWN INDICATION
     Dates: start: 20100801
  2. HERCEPTIN [Suspect]

REACTIONS (4)
  - CANCER PAIN [None]
  - ADJUSTMENT DISORDER [None]
  - SUICIDAL IDEATION [None]
  - DRUG INTOLERANCE [None]
